FAERS Safety Report 9859331 (Version 3)
Quarter: 2014Q2

REPORT INFORMATION
  Report Type: Spontaneous
  Country: FR (occurrence: FR)
  Receive Date: 20140131
  Receipt Date: 20140421
  Transmission Date: 20141212
  Serious: Yes (Hospitalization, Other)
  Sender: FDA-Public Use
  Company Number: FR-PFIZER INC-2014026530

PATIENT
  Age: 92 Year
  Sex: Female

DRUGS (9)
  1. LYRICA [Suspect]
     Dosage: 100 MG, 2X/DAY
     Route: 048
     Dates: end: 20131113
  2. OMEPRAZOLE [Suspect]
     Dosage: 40 MG, DAILY
     Route: 048
     Dates: end: 20131113
  3. MOTILIUM ^JANSSEN-CILAG^ [Suspect]
     Dosage: 10 MG, 3X/DAY
     Route: 048
     Dates: end: 20131113
  4. EBIXA [Suspect]
     Dosage: 20 MG, DAILY
     Route: 048
     Dates: end: 20131113
  5. SEROPLEX [Concomitant]
     Dosage: 20 MG, DAILY
  6. SEROPLEX [Concomitant]
     Dosage: 30 MG, DAILY
  7. ROCEPHINE [Concomitant]
     Indication: BRONCHOPNEUMONIA
     Dosage: UNK
  8. INEXIUM /01479302/ [Concomitant]
     Dosage: UNK
  9. INEXIUM /01479302/ [Concomitant]
     Dosage: 20 MG, DAILY

REACTIONS (6)
  - Psychomotor skills impaired [Recovered/Resolved]
  - Myoclonus [Recovered/Resolved]
  - Pulmonary embolism [Unknown]
  - Bronchopneumonia [Unknown]
  - Metabolic encephalopathy [Unknown]
  - Toxic encephalopathy [Unknown]
